FAERS Safety Report 9382326 (Version 1)
Quarter: 2013Q3

REPORT INFORMATION
  Report Type: Report from Study
  Country: GB (occurrence: GB)
  Receive Date: 20130703
  Receipt Date: 20130703
  Transmission Date: 20140515
  Serious: Yes (Hospitalization)
  Sender: FDA-Public Use
  Company Number: GB-PFIZER INC-2013165625

PATIENT
  Age: 16 Year
  Sex: Female
  Weight: 57 kg

DRUGS (8)
  1. DOXORUBICIN [Suspect]
     Indication: NEOPLASM MALIGNANT
     Dosage: 45 MG DAILY FOR 2 DAYS OVER 4 HOURS
     Route: 042
     Dates: start: 20130419
  2. IFOSFAMIDE [Suspect]
     Indication: NEOPLASM MALIGNANT
     Dosage: 4500 MG DAILY FOR 2 DAY OVER 3 HOURS
     Route: 042
     Dates: start: 20130419
  3. IFOSFAMIDE [Suspect]
     Dosage: UNK
  4. LYOVAC-COSMEGEN [Suspect]
     Indication: NEOPLASM MALIGNANT
     Dosage: 2 MG, 1X/DAY
     Route: 040
     Dates: start: 20130419
  5. LYOVAC-COSMEGEN [Suspect]
     Dosage: UNK
  6. VINCRISTINE [Suspect]
     Indication: NEOPLASM MALIGNANT
     Dosage: 2 MG, 1X/DAY
     Route: 040
     Dates: start: 20130419
  7. CO-TRIMOXAZOLE [Concomitant]
     Dosage: 960 MG, UNK
     Dates: start: 20130420
  8. FENTANYL [Concomitant]
     Dosage: 25 MG/HR
     Dates: start: 20130419

REACTIONS (1)
  - Febrile neutropenia [Recovered/Resolved]
